FAERS Safety Report 7495583-1 (Version None)
Quarter: 2011Q2

REPORT INFORMATION
  Report Type: 
  Country: None (occurrence: None)
  Receive Date: 20110523
  Receipt Date: 20110511
  Transmission Date: 20111010
  Serious: Yes (Hospitalization)
  Sender: FDA-Public Use
  Company Number: US-JNJFOC-20110506035

PATIENT
  Sex: Male
  Weight: 81.65 kg

DRUGS (5)
  1. AMLODIPINE [Concomitant]
     Indication: HYPERTENSION
     Route: 048
  2. METOPROLOL SUCCINATE [Concomitant]
     Indication: HYPERTENSION
     Route: 048
  3. UNKNOWN MEDICATION [Suspect]
     Indication: PAIN
     Route: 042
     Dates: start: 20101001, end: 20101001
  4. BENAZEPRIL HYDROCHLORIDE [Concomitant]
     Indication: HYPERTENSION
     Route: 048
  5. FENTANYL-100 [Suspect]
     Indication: PAIN
     Route: 062

REACTIONS (7)
  - DISORIENTATION [None]
  - MALAISE [None]
  - ABNORMAL BEHAVIOUR [None]
  - BACK PAIN [None]
  - RENAL NEOPLASM [None]
  - SOMNOLENCE [None]
  - VERTIGO [None]
